FAERS Safety Report 7741974-0 (Version None)
Quarter: 2011Q3

REPORT INFORMATION
  Report Type: 
  Country: None (occurrence: None)
  Receive Date: 20110831
  Receipt Date: 20110823
  Transmission Date: 20111222
  Serious: Yes (Other)
  Sender: FDA-Public Use
  Company Number: 2011SP039897

PATIENT
  Age: 85 Year
  Sex: Female

DRUGS (6)
  1. LORAZEPAM [Concomitant]
  2. MIRTAZAPINE [Suspect]
     Indication: INSOMNIA
     Dosage: 30 MG, QD, PO
     Route: 048
     Dates: start: 20110414, end: 20110604
  3. ODEPS IMODOA [Concomitant]
  4. TORODRIL [Concomitant]
  5. VOLTAREN [Concomitant]
  6. GABAPENTIN [Concomitant]

REACTIONS (4)
  - INSOMNIA [None]
  - MUSCLE SPASMS [None]
  - RESTLESS LEGS SYNDROME [None]
  - CONDITION AGGRAVATED [None]
